FAERS Safety Report 9861811 (Version 1)
Quarter: 2014Q1

REPORT INFORMATION
  Report Type: Report from Study
  Country: MX (occurrence: MX)
  Receive Date: 20140203
  Receipt Date: 20140203
  Transmission Date: 20141002
  Serious: Yes (Other)
  Sender: FDA-Public Use
  Company Number: MX-ROCHE-1342491

PATIENT
  Age: 59 Year
  Sex: Female

DRUGS (3)
  1. LUCENTIS [Suspect]
     Indication: MACULAR OEDEMA
     Dosage: 0.5/01.5/MG/ML
     Route: 050
     Dates: start: 201301
  2. LUCENTIS [Suspect]
     Route: 050
     Dates: start: 201310, end: 201310
  3. INSULIN [Concomitant]
     Indication: DIABETES MELLITUS
     Dosage: IN MORNING AND NIGHT
     Route: 065

REACTIONS (6)
  - Fall [Unknown]
  - Retinal detachment [Unknown]
  - Feeling of despair [Not Recovered/Not Resolved]
  - Gait disturbance [Not Recovered/Not Resolved]
  - Dizziness [Not Recovered/Not Resolved]
  - Visual acuity reduced [Unknown]
